FAERS Safety Report 6304307-2 (Version None)
Quarter: 2009Q3

REPORT INFORMATION
  Report Type: 
  Country: None (occurrence: None)
  Receive Date: 20090811
  Receipt Date: 20090803
  Transmission Date: 20100115
  Serious: Yes (Hospitalization)
  Sender: FDA-Public Use
  Company Number: AU-ASTRAZENECA-2009SE06774

PATIENT
  Age: 18138 Day
  Sex: Female
  Weight: 66 kg

DRUGS (8)
  1. SEROQUEL [Suspect]
     Route: 048
  2. STILNOX [Suspect]
     Indication: SLEEP DISORDER
     Route: 048
     Dates: start: 20080619, end: 20080626
  3. VALIUM [Suspect]
     Route: 048
     Dates: end: 20090627
  4. ALCOHOL [Suspect]
  5. LEXAPRO [Suspect]
     Route: 048
     Dates: end: 20080627
  6. MERSYNDOL [Suspect]
  7. CALTRATE 600 [Concomitant]
  8. FISH OIL [Concomitant]

REACTIONS (4)
  - FLUSHING [None]
  - MYDRIASIS [None]
  - SOMNAMBULISM [None]
  - SOMNOLENCE [None]
